FAERS Safety Report 12336932 (Version 1)
Quarter: 2016Q2

REPORT INFORMATION
  Report Type: Spontaneous
  Country: US (occurrence: US)
  Receive Date: 20160505
  Receipt Date: 20160505
  Transmission Date: 20160815
  Serious: No
  Sender: FDA-Public Use
  Company Number: US-TEVA-657388USA

PATIENT
  Age: 48 Year
  Sex: Female

DRUGS (10)
  1. CYANOCOBALAM [Concomitant]
  2. TIZANIDINE. [Concomitant]
     Active Substance: TIZANIDINE
  3. BUPROPION. [Concomitant]
     Active Substance: BUPROPION
  4. COPAXONE [Suspect]
     Active Substance: GLATIRAMER ACETATE
     Indication: MULTIPLE SCLEROSIS
     Route: 058
     Dates: start: 20141010
  5. AMPYRA [Concomitant]
     Active Substance: DALFAMPRIDINE
  6. TOLTERODINE [Concomitant]
     Active Substance: TOLTERODINE
  7. OMEPRAZOLE. [Concomitant]
     Active Substance: OMEPRAZOLE
  8. SERTRALINE [Concomitant]
     Active Substance: SERTRALINE HYDROCHLORIDE
  9. METRONIDAZOLE. [Concomitant]
     Active Substance: METRONIDAZOLE
  10. ALCOHOL PREP MED [Concomitant]
     Dosage: 2 PLY

REACTIONS (2)
  - Peroneal nerve palsy [Not Recovered/Not Resolved]
  - Fall [Unknown]

NARRATIVE: CASE EVENT DATE: 201507
